FAERS Safety Report 8083396-1 (Version None)
Quarter: 2012Q1

REPORT INFORMATION
  Report Type: 
  Country: None (occurrence: None)
  Receive Date: 20120127
  Receipt Date: 20110204
  Transmission Date: 20120608
  Serious: No
  Sender: FDA-Public Use
  Company Number: US-ABBOTT-11P-163-0702842-00

PATIENT
  Age: 56 Year
  Sex: Female

DRUGS (11)
  1. POTASSIUM CHLORIDE [Concomitant]
     Indication: PRODUCT USED FOR UNKNOWN INDICATION
  2. VITAMIN D [Concomitant]
     Indication: PRODUCT USED FOR UNKNOWN INDICATION
  3. AZASAN [Concomitant]
     Indication: PRODUCT USED FOR UNKNOWN INDICATION
     Dosage: 100 MG QD DECREASING DOSE
  4. IRON [Concomitant]
     Indication: PRODUCT USED FOR UNKNOWN INDICATION
  5. TINCTURE OF OPIUM 10% [Concomitant]
     Indication: PRODUCT USED FOR UNKNOWN INDICATION
     Dosage: 8 - 10 DROPS AT BEDTIME
  6. LOMOTIL [Concomitant]
     Indication: PRODUCT USED FOR UNKNOWN INDICATION
  7. NYSTATIN [Concomitant]
     Indication: FLATULENCE
  8. METRONIDAZOLE [Concomitant]
     Indication: PRODUCT USED FOR UNKNOWN INDICATION
  9. MULTI-VITAMIN [Concomitant]
     Indication: PRODUCT USED FOR UNKNOWN INDICATION
  10. HUMIRA [Suspect]
     Indication: CROHN'S DISEASE
     Dosage: ONE 40MG PEN INJECTED
     Route: 050
     Dates: start: 20110128
  11. SUPPLEMENTS [Concomitant]
     Indication: PRODUCT USED FOR UNKNOWN INDICATION

REACTIONS (2)
  - DIZZINESS [None]
  - NAUSEA [None]
